FAERS Safety Report 9249742 (Version 1)
Quarter: 2013Q2

REPORT INFORMATION
  Report Type: Spontaneous
  Country: SK (occurrence: SK)
  Receive Date: 20130423
  Receipt Date: 20130423
  Transmission Date: 20140414
  Serious: Yes (Life-Threatening, Hospitalization)
  Sender: FDA-Public Use
  Company Number: SK-B.I. PHARMACEUTICALS,INC./RIDGEFIELD-2013-AP-00320AP

PATIENT
  Age: 90 Year
  Sex: Female

DRUGS (9)
  1. PRADAXA [Suspect]
     Indication: ATRIAL FIBRILLATION
     Dosage: 220 MG
     Route: 048
     Dates: end: 20130219
  2. VEROSPIRON [Concomitant]
     Route: 048
  3. TENAXUM [Concomitant]
     Route: 048
  4. AGEN [Concomitant]
     Route: 048
  5. CARVEDIGAMMA [Concomitant]
     Route: 048
  6. PRITOR [Concomitant]
  7. FUROSEMID [Concomitant]
  8. CORVATON [Concomitant]
  9. MODURETIC [Concomitant]

REACTIONS (1)
  - Thrombocytopenia [Recovered/Resolved]
